FAERS Safety Report 20430187 (Version 1)
Quarter: 2022Q1

REPORT INFORMATION
  Report Type: Report from Study
  Country: FR (occurrence: FR)
  Receive Date: 20220204
  Receipt Date: 20220204
  Transmission Date: 20220423
  Serious: Yes (Other)
  Sender: FDA-Public Use
  Company Number: FR-SERVIER-S20000047

PATIENT

DRUGS (10)
  1. ONCASPAR [Suspect]
     Active Substance: PEGASPARGASE
     Indication: Acute lymphocytic leukaemia
     Dosage: 3000 IU (2500 IU/M2) DAILY, IV, ON D15 AND D43
     Route: 042
     Dates: start: 20191106, end: 20191223
  2. TN UNSPECIFIED [Concomitant]
     Indication: Acute lymphocytic leukaemia
     Dosage: 1.8 MG QD, ON D15, D22, D43
     Route: 042
     Dates: start: 20191106
  3. TN UNSPECIFIED [Concomitant]
     Indication: Acute lymphocytic leukaemia
     Dosage: 1.2 MG QD, ON D3, D29
     Route: 042
     Dates: start: 20191023
  4. TN UNSPECIFIED [Concomitant]
     Indication: Acute lymphocytic leukaemia
     Dosage: 15 MG QD, ON D3, D31
     Route: 037
     Dates: start: 20191025
  5. TN UNSPECIFIED [Concomitant]
     Indication: Acute lymphocytic leukaemia
     Dosage: UNK, ON D3 TO D6, D10 TO D13, D31 TO D34
     Route: 042
     Dates: start: 20191025
  6. TN UNSPECIFIED [Concomitant]
     Dosage: 30 MG QD, ON D3, D31
     Route: 037
     Dates: start: 20191025
  7. TN UNSPECIFIED [Concomitant]
     Indication: Acute lymphocytic leukaemia
     Dosage: 15 MG QD ON D3, D31
     Route: 037
     Dates: start: 20191025
  8. TN UNSPECIFIED [Concomitant]
     Indication: Acute lymphocytic leukaemia
     Dosage: 70 MG QD, ON D1 TO D14, D29 TO D42
     Route: 048
     Dates: start: 20191023
  9. BACTRIM [Concomitant]
     Active Substance: SULFAMETHOXAZOLE\TRIMETHOPRIM
     Indication: Product used for unknown indication
     Dosage: 800 MG, 3X A WEEK
     Route: 065
  10. ONDANSETRON [Concomitant]
     Active Substance: ONDANSETRON
     Indication: Prophylaxis of nausea and vomiting
     Route: 065

REACTIONS (2)
  - Erythema [Recovered/Resolved]
  - Vomiting [Recovered/Resolved]

NARRATIVE: CASE EVENT DATE: 20191223
